FAERS Safety Report 24726851 (Version 1)
Quarter: 2024Q4

REPORT INFORMATION
  Report Type: Spontaneous
  Country: CA (occurrence: CA)
  Receive Date: 20241212
  Receipt Date: 20241212
  Transmission Date: 20250114
  Serious: Yes (Hospitalization)
  Sender: PFIZER
  Company Number: CA-PFIZER INC-202400218255

PATIENT
  Age: 71 Year
  Sex: Female
  Weight: 109 kg

DRUGS (7)
  1. RUXIENCE [Suspect]
     Active Substance: RITUXIMAB-PVVR
     Indication: Granulomatosis with polyangiitis
     Dosage: 790 MG, WEEKLY (FOR 4 WEEKS)
     Route: 042
     Dates: start: 20210909, end: 20211007
  2. RUXIENCE [Suspect]
     Active Substance: RITUXIMAB-PVVR
     Indication: Microscopic polyangiitis
     Dosage: 500 MG EVERY 6 MONTHS
     Route: 042
     Dates: start: 20220624, end: 20221220
  3. RUXIENCE [Suspect]
     Active Substance: RITUXIMAB-PVVR
     Dosage: 500 MG EVERY 6 MONTHS (SINGLE DOSE)
     Route: 042
     Dates: start: 20230608
  4. RUXIENCE [Suspect]
     Active Substance: RITUXIMAB-PVVR
     Dosage: 500 MG EVERY 6 MONTHS (SINGLE DOSE)
     Route: 042
     Dates: start: 20231212
  5. RUXIENCE [Suspect]
     Active Substance: RITUXIMAB-PVVR
     Dosage: 500 MG EVERY 6 MONTHS (SINGLE DOSE)
     Route: 042
     Dates: start: 20240718
  6. METHOTREXATE [Concomitant]
     Active Substance: METHOTREXATE
     Indication: Psoriatic arthropathy
     Dosage: 15 MG, WEEKLY
     Dates: start: 20130401
  7. PREDNISONE [Concomitant]
     Active Substance: PREDNISONE
     Dosage: 50 MG, 1X/DAY (TAPERED TO 12.5)
     Route: 065

REACTIONS (3)
  - Rubber sensitivity [Unknown]
  - Urinary tract infection [Recovered/Resolved]
  - Incorrect product administration duration [Unknown]
